FAERS Safety Report 6958817-5 (Version None)
Quarter: 2010Q3

REPORT INFORMATION
  Report Type: 
  Country: None (occurrence: None)
  Receive Date: 20100831
  Receipt Date: 20100826
  Transmission Date: 20110219
  Serious: Yes (Death, Hospitalization, Other)
  Sender: FDA-Public Use
  Company Number: PHHY2010CH56488

PATIENT
  Sex: Female

DRUGS (7)
  1. VOLTAREN [Suspect]
     Dosage: UNK
     Dates: start: 19990101, end: 20100718
  2. ELTROXIN [Concomitant]
     Dosage: 0.05 MG/DAY
  3. NEXIUM [Concomitant]
     Dosage: UNK
     Dates: start: 20100719
  4. VITARUBIN [Concomitant]
     Dosage: 1000 MCG /DAY
     Route: 058
     Dates: start: 20100720
  5. FOLIC ACID [Concomitant]
     Dosage: 5 MG/DAY
     Dates: start: 20100720
  6. HALDOL [Concomitant]
     Dosage: 0.5 MG/DAY
  7. TRAMAL [Concomitant]
     Dosage: 50 MG/D
     Dates: start: 20100718

REACTIONS (13)
  - ANAEMIA [None]
  - ASPIRATION BRONCHIAL [None]
  - ASTHENIA [None]
  - CONDITION AGGRAVATED [None]
  - DECREASED APPETITE [None]
  - DEHYDRATION [None]
  - DELUSION [None]
  - DUODENAL ULCER [None]
  - HALLUCINATION, VISUAL [None]
  - MELAENA [None]
  - OEDEMA PERIPHERAL [None]
  - PAIN [None]
  - VENOUS INSUFFICIENCY [None]
